FAERS Safety Report 5638132-2 (Version None)
Quarter: 2008Q1

REPORT INFORMATION
  Report Type: 
  Country: None (occurrence: None)
  Receive Date: 20080221
  Receipt Date: 20080212
  Transmission Date: 20080703
  Serious: Yes (Other)
  Sender: FDA-Public Use
  Company Number: 18374

PATIENT
  Sex: Female

DRUGS (7)
  1. METHOTREXATE [Suspect]
     Indication: LYMPHOPROLIFERATIVE DISORDER
  2. VINCRISTINE [Suspect]
     Indication: LYMPHOPROLIFERATIVE DISORDER
  3. DAUNORUBICIN HCL [Suspect]
     Indication: LYMPHOPROLIFERATIVE DISORDER
  4. PREDNISONE TAB [Suspect]
     Indication: LYMPHOPROLIFERATIVE DISORDER
  5. PEG ASPARAGINASE [Suspect]
     Indication: LYMPHOPROLIFERATIVE DISORDER
  6. FLUDARABINE [Concomitant]
  7. CYTARABINE [Concomitant]

REACTIONS (2)
  - PANCREATITIS [None]
  - REVERSIBLE POSTERIOR LEUKOENCEPHALOPATHY SYNDROME [None]
